FAERS Safety Report 19484438 (Version 2)
Quarter: 2021Q3

REPORT INFORMATION
  Report Type: Report from Study
  Country: PL (occurrence: PL)
  Receive Date: 20210701
  Receipt Date: 20210708
  Transmission Date: 20211014
  Serious: Yes (Hospitalization, Other)
  Sender: FDA-Public Use
  Company Number: PL-BRISTOL-MYERS SQUIBB COMPANY-BMS-2021-062306

PATIENT
  Age: 56 Year
  Sex: Male
  Weight: 82 kg

DRUGS (10)
  1. CABOZANTINIB [Suspect]
     Active Substance: CABOZANTINIB
     Indication: METASTATIC RENAL CELL CARCINOMA
     Dosage: 40 MILLIGRAM
     Route: 065
     Dates: start: 20180816
  2. POLTRAM COMBO [Concomitant]
     Active Substance: ACETAMINOPHEN\TRAMADOL HYDROCHLORIDE
     Indication: PRODUCT USED FOR UNKNOWN INDICATION
     Dosage: 362.5 MILLIGRAM
     Route: 048
     Dates: start: 20180725
  3. NEOPARIN [Concomitant]
     Active Substance: ENOXAPARIN SODIUM
     Indication: OEDEMA PERIPHERAL
     Dosage: 40 MILLIGRAM
     Route: 058
     Dates: start: 20210401
  4. EUTHYROX [Concomitant]
     Active Substance: LEVOTHYROXINE SODIUM
     Indication: BLOOD THYROID STIMULATING HORMONE INCREASED
     Dosage: 250 MILLIGRAM
     Route: 048
     Dates: start: 20210203
  5. CYCLO 3 FORT [Concomitant]
     Active Substance: ASCORBIC ACID\HESPERIDIN METHYLCHALCONE\RUSCUS ACULEATUS ROOT
     Indication: PRODUCT USED FOR UNKNOWN INDICATION
     Dosage: 150 MILLIGRAM
     Route: 048
     Dates: start: 20180725
  6. CLEXANE [Concomitant]
     Active Substance: ENOXAPARIN SODIUM
     Indication: PULMONARY EMBOLISM
     Dosage: 80 MILLIGRAM
     Route: 058
     Dates: start: 20181213
  7. NIVOLUMAB [Suspect]
     Active Substance: NIVOLUMAB
     Indication: METASTATIC RENAL CELL CARCINOMA
     Dosage: 240 MILLIGRAM
     Route: 042
     Dates: start: 20180816
  8. PROCTO HEMOLAN [Concomitant]
     Indication: VARICOSE VEIN
     Dosage: 0.9 GRAM
     Route: 054
     Dates: start: 20190824
  9. DEBUTINE [Concomitant]
     Indication: PRODUCT USED FOR UNKNOWN INDICATION
     Dosage: 0.3 GRAM
     Route: 048
     Dates: start: 20191030
  10. GASEC [Concomitant]
     Active Substance: OMEPRAZOLE SODIUM
     Indication: PRODUCT USED FOR UNKNOWN INDICATION
     Dosage: 20 MILLIGRAM
     Route: 048
     Dates: start: 20181108

REACTIONS (1)
  - Urinary fistula [Recovered/Resolved]

NARRATIVE: CASE EVENT DATE: 20210615
